FAERS Safety Report 7404312-9 (Version None)
Quarter: 2011Q2

REPORT INFORMATION
  Report Type: 
  Country: None (occurrence: None)
  Receive Date: 20110408
  Receipt Date: 20110406
  Transmission Date: 20111010
  Serious: Yes (Death, Hospitalization)
  Sender: FDA-Public Use
  Company Number: GB-ROCHE-691422

PATIENT
  Sex: Male

DRUGS (16)
  1. BESITRAN [Concomitant]
     Dosage: FREQUENCY: 1-0-0
  2. PREDNISONE [Concomitant]
     Dosage: FREQUENCY: AS PROTOCOL INDICATES.
  3. IDEOS [Concomitant]
     Dosage: DOSE: 1 C/ DAY
  4. SIMVASTATIN [Concomitant]
     Dosage: FREQUENCY: 0-0-1
  5. RANITIDINE HCL [Concomitant]
  6. MYCOPHENOLATE MOFETIL [Suspect]
     Dosage: CURRENT DOSE
     Route: 065
     Dates: start: 20100204
  7. INSULINA [Concomitant]
     Dosage: 20-0-6 UI DRUG NAME: INSULINA N PIT
  8. AMLODIPINO [Concomitant]
  9. SEPTRIN [Concomitant]
     Dosage: FREQUENCY: L-X-V
  10. DUPHALAC [Concomitant]
     Dosage: FREQUENCY : 1-1-1
  11. ARANESP [Concomitant]
     Dosage: (FRIDAY)
  12. MYCOPHENOLATE MOFETIL [Suspect]
     Indication: ANTI-NEUTROPHIL CYTOPLASMIC ANTIBODY POSITIVE VASCULITIS
     Dosage: PREVIOUS DOSE
     Route: 065
     Dates: start: 20100128
  13. MYCOSTATIN [Concomitant]
     Dosage: 1 C / 12 HOURS
  14. CLOPIDOGREL [Concomitant]
     Dosage: 75 M / 24 HOUR
  15. PLANTABEN [Concomitant]
     Dosage: 1/8 HOUR
  16. MICONAZOLE [Concomitant]
     Dosage: FREQUENCY: AS PROTOCOL INDICATES

REACTIONS (1)
  - GASTROINTESTINAL HAEMORRHAGE [None]
